FAERS Safety Report 6477214-2 (Version None)
Quarter: 2009Q4

REPORT INFORMATION
  Report Type: 
  Country: None (occurrence: None)
  Receive Date: 20091204
  Receipt Date: 20091204
  Transmission Date: 20100525
  Serious: Yes (Other)
  Sender: FDA-Public Use
  Company Number: None

PATIENT
  Age: 25 Year
  Sex: Female
  Weight: 51.2565 kg

DRUGS (1)
  1. IMITREX [Suspect]
     Indication: MIGRAINE
     Dosage: 1 TABLET ONCE PERHEADACHE PO
     Route: 048
     Dates: start: 20090407, end: 20090630

REACTIONS (4)
  - BREAST ENGORGEMENT [None]
  - BREAST PAIN [None]
  - BURNING SENSATION [None]
  - FEELING ABNORMAL [None]
